FAERS Safety Report 6849097-X (Version None)
Quarter: 2010Q3

REPORT INFORMATION
  Report Type: 
  Country: None (occurrence: None)
  Receive Date: 20100716
  Receipt Date: 20070927
  Transmission Date: 20110219
  Serious: No
  Sender: FDA-Public Use
  Company Number: US-PFIZER INC-2007081043

PATIENT
  Sex: Male
  Weight: 90.9 kg

DRUGS (7)
  1. CHANTIX [Suspect]
     Indication: SMOKING CESSATION THERAPY
     Dates: start: 20070101
  2. DIAZEPAM [Concomitant]
  3. OXYCODONE HCL [Concomitant]
  4. AMBIEN [Concomitant]
  5. ATACAND [Concomitant]
  6. ACETYLSALICYLIC ACID [Concomitant]
  7. IBUPROFEN [Concomitant]

REACTIONS (4)
  - DECREASED APPETITE [None]
  - DRUG INEFFECTIVE [None]
  - NAUSEA [None]
  - TOBACCO USER [None]
